FAERS Safety Report 6788258-5 (Version None)
Quarter: 2010Q2

REPORT INFORMATION
  Report Type: 
  Country: None (occurrence: None)
  Receive Date: 20100623
  Receipt Date: 20080208
  Transmission Date: 20101027
  Serious: No
  Sender: FDA-Public Use
  Company Number: US-PFIZER INC-2008006347

PATIENT
  Sex: Male
  Weight: 79.5 kg

DRUGS (6)
  1. GEODON [Suspect]
     Indication: ANXIETY
     Dates: start: 20070101
  2. GEODON [Suspect]
     Indication: SCHIZOPHRENIA
  3. GEODON [Suspect]
     Indication: PARANOIA
  4. GEODON [Suspect]
     Indication: SEDATION
  5. DEPAKOTE [Concomitant]
     Indication: BIPOLAR DISORDER
  6. ZYRTEC [Concomitant]
     Indication: HYPERSENSITIVITY

REACTIONS (2)
  - RESPIRATORY TRACT INFECTION [None]
  - SOMNOLENCE [None]
